FAERS Safety Report 5461284-4 (Version None)
Quarter: 2007Q3

REPORT INFORMATION
  Report Type: 
  Country: None (occurrence: None)
  Receive Date: 20070920
  Receipt Date: 20060919
  Transmission Date: 20080115
  Serious: No
  Sender: FDA-Public Use
  Company Number: A0618900A

PATIENT
  Age: 39 Year
  Sex: Female

DRUGS (1)
  1. ABREVA [Suspect]
     Route: 061
     Dates: start: 20060807

REACTIONS (2)
  - DRUG INEFFECTIVE [None]
  - LIP DISCOLOURATION [None]
